FAERS Safety Report 17391727 (Version 7)
Quarter: 2021Q1

REPORT INFORMATION
  Report Type: Spontaneous
  Country: US (occurrence: US)
  Receive Date: 20200207
  Receipt Date: 20210320
  Transmission Date: 20210419
  Serious: Yes (Death, Congenital Anomaly, Other)
  Sender: FDA-Public Use
  Company Number: NVSC2020US032878

PATIENT
  Age: 0 Day
  Sex: Male

DRUGS (3)
  1. ONDANSETRON AUROBINDO [Suspect]
     Active Substance: ONDANSETRON HYDROCHLORIDE
     Indication: FOETAL EXPOSURE DURING PREGNANCY
     Dosage: MOTHER DOSE: 08 MG, QD
     Route: 064
  2. ONDANSETRON TEVA [Suspect]
     Active Substance: ONDANSETRON
     Indication: FOETAL EXPOSURE DURING PREGNANCY
     Dosage: MOTHER DOSE: 08 MG, QD
     Route: 064
  3. ZOFRAN ODT [Suspect]
     Active Substance: ONDANSETRON HYDROCHLORIDE
     Indication: FOETAL EXPOSURE DURING PREGNANCY
     Route: 064

REACTIONS (34)
  - Nasal congestion [Unknown]
  - Death [Fatal]
  - Foetal exposure during pregnancy [Unknown]
  - Asthma [Unknown]
  - Cough [Unknown]
  - Cardiac murmur [Unknown]
  - Diarrhoea [Unknown]
  - Bronchitis [Unknown]
  - Atelectasis [Unknown]
  - Heart disease congenital [Unknown]
  - Small airways disease [Unknown]
  - Chronic respiratory disease [Unknown]
  - Vomiting [Unknown]
  - Developmental delay [Unknown]
  - Premature baby [Unknown]
  - Bronchopulmonary dysplasia [Unknown]
  - Respiratory distress [Unknown]
  - Haemolysis [Unknown]
  - Injury [Unknown]
  - Crying [Unknown]
  - Viral infection [Unknown]
  - Fatigue [Unknown]
  - Patent ductus arteriosus [Unknown]
  - Cystic fibrosis [Unknown]
  - Pyrexia [Unknown]
  - Rhinorrhoea [Unknown]
  - Rhinovirus infection [Unknown]
  - Sinus tachycardia [Unknown]
  - Low birth weight baby [Unknown]
  - Cardiomegaly [Unknown]
  - Inguinal hernia [Unknown]
  - Rash [Unknown]
  - Dermatitis diaper [Unknown]
  - Erythema [Unknown]

NARRATIVE: CASE EVENT DATE: 20130828
